FAERS Safety Report 6106940-X (Version None)
Quarter: 2009Q1

REPORT INFORMATION
  Report Type: 
  Country: None (occurrence: None)
  Receive Date: 20090305
  Receipt Date: 20090305
  Transmission Date: 20090719
  Serious: Yes (Other)
  Sender: FDA-Public Use
  Company Number: None

PATIENT
  Sex: Female

DRUGS (1)
  1. LAMOTRIGINE [Suspect]
     Dosage: 200MG. QD PO
     Route: 048

REACTIONS (3)
  - AGITATION [None]
  - MANIA [None]
  - PRODUCT QUALITY ISSUE [None]
